FAERS Safety Report 26023589 (Version 2)
Quarter: 2025Q4

REPORT INFORMATION
  Report Type: Spontaneous
  Country: JP (occurrence: JP)
  Receive Date: 20251111
  Receipt Date: 20251219
  Transmission Date: 20260118
  Serious: Yes (Hospitalization)
  Sender: ABBVIE
  Company Number: JP-ABBVIE-6536813

PATIENT

DRUGS (1)
  1. HUMIRA [Suspect]
     Active Substance: ADALIMUMAB
     Indication: Sweat gland infection
     Dosage: DURATION TEXT: 3 TIMES, FORM STRENGTH: 80 MILLIGRAM
     Route: 058
     Dates: end: 2025

REACTIONS (3)
  - Acne [Unknown]
  - Abscess [Recovering/Resolving]
  - Off label use [Unknown]

NARRATIVE: CASE EVENT DATE: 20250101
